FAERS Safety Report 9413295 (Version 3)
Quarter: 2014Q2

REPORT INFORMATION
  Report Type: Spontaneous
  Country: US (occurrence: US)
  Receive Date: 20130722
  Receipt Date: 20140507
  Transmission Date: 20141212
  Serious: Yes (Hospitalization, Disabling, Other)
  Sender: FDA-Public Use
  Company Number: US-009507513-1307USA010396

PATIENT
  Sex: Female

DRUGS (5)
  1. FOSAMAX [Suspect]
     Indication: OSTEOPOROSIS
     Dosage: 70 MG, QW
     Route: 048
     Dates: start: 2003
  2. FOSAMAX [Suspect]
     Dosage: 35 MG, QW
     Route: 048
  3. ALENDRONATE SODIUM [Suspect]
     Indication: OSTEOPOROSIS
     Dosage: 70 MG, UNK
     Route: 048
  4. ALENDRONATE SODIUM [Suspect]
     Indication: OSTEOPENIA
  5. BONIVA [Suspect]
     Indication: OSTEOPOROSIS
     Dosage: 150 MG, UNK
     Route: 048
     Dates: start: 2006, end: 200804

REACTIONS (19)
  - Gastrointestinal infection [Unknown]
  - Osteonecrosis of jaw [Recovered/Resolved]
  - Depression [Not Recovered/Not Resolved]
  - Dental caries [Unknown]
  - Debridement [Unknown]
  - Biopsy bone [Unknown]
  - Hypertension [Unknown]
  - Blood cholesterol increased [Unknown]
  - Glaucoma [Unknown]
  - Macular degeneration [Unknown]
  - Neuralgia [Unknown]
  - Anaesthetic complication [Unknown]
  - Sinusitis [Recovered/Resolved]
  - Hysterectomy [Unknown]
  - Tooth abscess [Unknown]
  - Tooth fracture [Unknown]
  - Toothache [Unknown]
  - Hand fracture [Unknown]
  - Gingival ulceration [Unknown]
